FAERS Safety Report 22079780 (Version 1)
Quarter: 2023Q1

REPORT INFORMATION
  Report Type: Report from Study
  Country: AR (occurrence: AR)
  Receive Date: 20230309
  Receipt Date: 20230309
  Transmission Date: 20230418
  Serious: Yes (Other)
  Sender: FDA-Public Use
  Company Number: AR-002147023-NVSC2023AR050734

PATIENT
  Age: 81 Year
  Sex: Female

DRUGS (1)
  1. INDACATEROL MALEATE [Suspect]
     Active Substance: INDACATEROL MALEATE
     Indication: Chronic obstructive pulmonary disease
     Dosage: UNK, QD, STARTED 5 YEARS AGO
     Dates: end: 202210

REACTIONS (7)
  - Arrhythmia [Unknown]
  - Pain in extremity [Unknown]
  - Feeling abnormal [Unknown]
  - Tension [Unknown]
  - Movement disorder [Unknown]
  - Periarthritis [Unknown]
  - Drug hypersensitivity [Unknown]
